FAERS Safety Report 8881437 (Version 1)
Quarter: 2012Q4

REPORT INFORMATION
  Report Type: 
  Country: US (occurrence: US)
  Receive Date: 20121101
  Receipt Date: 20121101
  Transmission Date: 20130627
  Serious: No
  Sender: FDA-Public Use
  Company Number: US-PFIZER INC-2012267565

PATIENT
  Age: 64 Year
  Sex: Female
  Weight: 59 kg

DRUGS (8)
  1. ESTRING [Suspect]
     Indication: VAGINAL DRYNESS
     Dosage: UNK, once in three months
     Route: 067
     Dates: end: 20121024
  2. ESTRADIOL [Suspect]
     Indication: VAGINAL DRYNESS
     Dosage: 0.0375 mg, UNK
     Dates: end: 20121024
  3. ZETIA [Concomitant]
     Indication: HIGH CHOLESTEROL
     Dosage: UNK
  4. SYNTHROID [Concomitant]
     Dosage: UNK
  5. PAXIL [Concomitant]
     Dosage: UNK
  6. WELLBUTRIN [Concomitant]
     Dosage: UNK
  7. PRILOSEC [Concomitant]
     Dosage: UNK
  8. KLONOPIN [Concomitant]
     Dosage: UNK

REACTIONS (1)
  - Hot flush [Not Recovered/Not Resolved]
